FAERS Safety Report 17830519 (Version 1)
Quarter: 2020Q2

REPORT INFORMATION
  Report Type: Spontaneous
  Country: US (occurrence: US)
  Receive Date: 20200527
  Receipt Date: 20200527
  Transmission Date: 20200714
  Serious: Yes (Other)
  Sender: FDA-Public Use
  Company Number: US-JNJFOC-20200523783

PATIENT
  Age: 14 Year
  Sex: Female

DRUGS (1)
  1. BENADRYL [Suspect]
     Active Substance: DIPHENHYDRAMINE HYDROCHLORIDE
     Indication: PRODUCT USED FOR UNKNOWN INDICATION
     Dosage: 7 TABLETS ONCE
     Route: 065
     Dates: start: 20200517

REACTIONS (2)
  - Intentional overdose [Unknown]
  - Suspected suicide attempt [Unknown]

NARRATIVE: CASE EVENT DATE: 20200517
